FAERS Safety Report 6614660-8 (Version None)
Quarter: 2010Q1

REPORT INFORMATION
  Report Type: 
  Country: None (occurrence: None)
  Receive Date: 20100226
  Receipt Date: 20090211
  Transmission Date: 20100710
  Serious: Yes (Death, Hospitalization)
  Sender: FDA-Public Use
  Company Number: 2009EU000663

PATIENT
  Age: 48 Year
  Sex: Male

DRUGS (4)
  1. PROGRAF [Suspect]
     Indication: LIVER TRANSPLANT
     Dosage: 200 MG, /D, ORAL
     Route: 048
     Dates: start: 20081008
  2. SOLU-MEDROL [Suspect]
     Indication: LIVER TRANSPLANT
     Dosage: 0.5 MG,/D, ORAL
     Route: 048
     Dates: start: 20081008
  3. INIPOMP (PANTOPRAZOLE SODIUM) [Concomitant]
  4. URSODIOL [Concomitant]

REACTIONS (5)
  - BLOOD LACTIC ACID INCREASED [None]
  - CONTINUOUS HAEMODIAFILTRATION [None]
  - MULTI-ORGAN FAILURE [None]
  - RESPIRATORY DISORDER [None]
  - SEPTIC SHOCK [None]
